FAERS Safety Report 5071227-3 (Version None)
Quarter: 2006Q3

REPORT INFORMATION
  Report Type: 
  Country: None (occurrence: None)
  Receive Date: 20060803
  Receipt Date: 20060803
  Transmission Date: 20061208
  Serious: Yes (Hospitalization)
  Sender: FDA-Public Use
  Company Number: None

PATIENT
  Age: 80 Year
  Sex: Male
  Weight: 79.4 kg

DRUGS (12)
  1. MORPHINE [Suspect]
     Indication: MUSCULOSKELETAL PAIN
     Dosage: 15MG  Q12ORAL
     Route: 048
     Dates: start: 20060620, end: 20060706
  2. HYDROMORPHONE HCL [Suspect]
     Indication: MUSCULOSKELETAL PAIN
     Dosage: 2MG  Q6HORAL
     Route: 048
     Dates: start: 20060420
  3. PREDNISONE [Concomitant]
  4. CALCIUM / VITAMIN D [Concomitant]
  5. ALENDRONATE SODIUM [Concomitant]
  6. ALLOPURINOL [Concomitant]
  7. GABAPENTIN [Concomitant]
  8. TERAZOSIN HCL [Concomitant]
  9. ALBUTEROL / IPRATROP [Concomitant]
  10. SIMVASTATIN [Concomitant]
  11. LISINOPRIL [Concomitant]
  12. GLYBURIDE [Concomitant]

REACTIONS (1)
  - CONSTIPATION [None]
